FAERS Safety Report 13299407 (Version 1)
Quarter: 2017Q1

REPORT INFORMATION
  Report Type: Spontaneous
  Country: RU (occurrence: RU)
  Receive Date: 20170306
  Receipt Date: 20170306
  Transmission Date: 20170428
  Serious: Yes (Other)
  Sender: FDA-Public Use
  Company Number: RU-BAYER-2017-029082

PATIENT
  Age: 39 Year
  Sex: Female

DRUGS (1)
  1. YARINA [Suspect]
     Active Substance: DROSPIRENONE\ETHINYL ESTRADIOL
     Dosage: UNK
     Route: 048

REACTIONS (3)
  - Weight decreased [None]
  - Helicobacter gastritis [None]
  - Abnormal withdrawal bleeding [None]
